FAERS Safety Report 5446670-0 (Version None)
Quarter: 2007Q3

REPORT INFORMATION
  Report Type: 
  Country: None (occurrence: None)
  Receive Date: 20070907
  Receipt Date: 20070830
  Transmission Date: 20080115
  Serious: Yes (Life-Threatening, Hospitalization)
  Sender: FDA-Public Use
  Company Number: NO-SHR-NO-2006-001325

PATIENT
  Age: 44 Year
  Sex: Female
  Weight: 48 kg

DRUGS (6)
  1. LEVONORGESTREL [Suspect]
     Indication: CONTRACEPTION
     Dosage: 20 A?G/DAY, CONT
     Route: 015
     Dates: start: 20040721, end: 20040902
  2. REMERON [Concomitant]
  3. ZYPREXA [Concomitant]
  4. EFFEXOR [Concomitant]
  5. CIPROFLOXACIN [Concomitant]
     Dates: end: 20040712
  6. SELEXID [Concomitant]
     Dates: start: 20040712

REACTIONS (23)
  - ABDOMINAL PAIN UPPER [None]
  - ABNORMAL FAECES [None]
  - ALOPECIA [None]
  - ANOREXIA [None]
  - ANXIETY [None]
  - APHASIA [None]
  - CHROMATURIA [None]
  - DEPRESSION [None]
  - FLATULENCE [None]
  - HAIR DISORDER [None]
  - HEART RATE INCREASED [None]
  - HYPERHIDROSIS [None]
  - MALAISE [None]
  - MUCOUS MEMBRANE DISORDER [None]
  - NAUSEA [None]
  - PALPITATIONS [None]
  - SUICIDE ATTEMPT [None]
  - TREMOR [None]
  - URINE ODOUR ABNORMAL [None]
  - UTERINE PAIN [None]
  - VAGINAL DISCHARGE [None]
  - VOMITING [None]
  - WEIGHT DECREASED [None]
